FAERS Safety Report 4289331-6 (Version None)
Quarter: 2004Q1

REPORT INFORMATION
  Report Type: 
  Country: None (occurrence: None)
  Receive Date: 20040204
  Receipt Date: 20030113
  Transmission Date: 20041129
  Serious: No
  Sender: FDA-Public Use
  Company Number: 10022944-C552943-1

PATIENT
  Age: 55 Year
  Sex: Female
  Weight: 63.5036 kg

DRUGS (1)
  1. 1#2B1323Q - 0.9% SOD CHL INJ, USP [Suspect]
     Indication: FLUID REPLACEMENT
     Dosage: APPROX. 50CC INTRAVENOUS
     Route: 042
     Dates: start: 20030113

REACTIONS (1)
  - PHLEBITIS [None]
